FAERS Safety Report 6751286-X (Version None)
Quarter: 2010Q2

REPORT INFORMATION
  Report Type: 
  Country: None (occurrence: None)
  Receive Date: 20100602
  Receipt Date: 20100517
  Transmission Date: 20101027
  Serious: Yes (Other)
  Sender: FDA-Public Use
  Company Number: PHHY2010IN32442

PATIENT
  Age: 30 Year
  Sex: Female

DRUGS (4)
  1. CLOZAPINE [Suspect]
     Indication: SCHIZOPHRENIA
     Dosage: 400 MG / DAY
  2. VALPROATE SODIUM [Concomitant]
     Indication: CONVULSION
     Dosage: 400 MG / DAY
  3. HEPARIN [Concomitant]
     Indication: COAGULOPATHY
     Dosage: 500 IU, QID
  4. SINTROM [Concomitant]
     Dosage: 2 MG / DAY

REACTIONS (9)
  - CEREBRAL VENOUS THROMBOSIS [None]
  - CONVULSION [None]
  - FATIGUE [None]
  - HEMIPARESIS [None]
  - IMPAIRED SELF-CARE [None]
  - IRRITABILITY [None]
  - PROTEIN C DECREASED [None]
  - PROTEIN S DECREASED [None]
  - VOMITING [None]
